FAERS Safety Report 8301737-4 (Version None)
Quarter: 2012Q2

REPORT INFORMATION
  Report Type: 
  Country: None (occurrence: None)
  Receive Date: 20120420
  Receipt Date: 20120411
  Transmission Date: 20120825
  Serious: Yes (Death, Hospitalization)
  Sender: FDA-Public Use
  Company Number: US-ACTELION-A-US2012-64237

PATIENT

DRUGS (3)
  1. TRACLEER [Suspect]
     Indication: PULMONARY ARTERIAL HYPERTENSION
     Dosage: UNK
     Route: 048
     Dates: start: 20110325, end: 20120306
  2. SILDENAFIL [Concomitant]
  3. TYVASO [Concomitant]

REACTIONS (5)
  - FLUID OVERLOAD [None]
  - PERICARDIAL EFFUSION [None]
  - DYSPNOEA [None]
  - DEATH [None]
  - CARDIAC FAILURE [None]
